FAERS Safety Report 19691094 (Version 1)
Quarter: 2021Q3

REPORT INFORMATION
  Report Type: Spontaneous
  Country: AF (occurrence: AF)
  Receive Date: 20210812
  Receipt Date: 20210812
  Transmission Date: 20211014
  Serious: No
  Sender: FDA-Public Use
  Company Number: None

PATIENT
  Age: 54 Year
  Sex: Female
  Weight: 106.65 kg

DRUGS (16)
  1. VERZENIO [Suspect]
     Active Substance: ABEMACICLIB
     Indication: BREAST CANCER
     Route: 048
     Dates: start: 20210527
  2. ALPRAZOLAM 0.25MG [Concomitant]
     Active Substance: ALPRAZOLAM
  3. METOPROLOL SUCCINATE ER 100MG [Concomitant]
  4. VITAMIN C 250MG [Concomitant]
  5. ANASTROZOLE 1MG [Concomitant]
     Active Substance: ANASTROZOLE
  6. ALEVE PM 220?25MG [Concomitant]
  7. MAGNESIUM CITRATE 100MG [Concomitant]
  8. MOTRIN PM 200?38MG [Concomitant]
  9. VITAMIN B COMPLEX [Concomitant]
     Active Substance: CYANOCOBALAMIN\DEXPANTHENOL\NIACINAMIDE\PYRIDOXINE HYDROCHLORIDE\RIBOFLAVIN 5^-PHOSPHATE SODIUM\THIAMINE HYDROCHLORIDE\VITAMIN B COMPLEX
  10. PROLIA [Concomitant]
     Active Substance: DENOSUMAB
  11. CLARITIN [Concomitant]
     Active Substance: LORATADINE
  12. OMEGA 3 1000MG [Concomitant]
  13. CALCIUM + D 1000MG?800IU [Concomitant]
  14. ACYCLOVIR 800MG [Concomitant]
     Active Substance: ACYCLOVIR
  15. PANTOPRAZOLE 20MG [Concomitant]
     Active Substance: PANTOPRAZOLE SODIUM
  16. MULTIVITAMIN GUMMIES [Concomitant]

REACTIONS (4)
  - Chills [None]
  - Fatigue [None]
  - Alopecia [None]
  - Hot flush [None]

NARRATIVE: CASE EVENT DATE: 20210812
